FAERS Safety Report 6716223-2 (Version None)
Quarter: 2010Q2

REPORT INFORMATION
  Report Type: 
  Country: None (occurrence: None)
  Receive Date: 20100506
  Receipt Date: 20100506
  Transmission Date: 20101027
  Serious: Yes (Life-Threatening, Other)
  Sender: FDA-Public Use
  Company Number: None

PATIENT
  Age: 44 Year
  Sex: Male
  Weight: 121.1104 kg

DRUGS (3)
  1. INJECTABLE HCG UNKNOWN UNKNOWN [Suspect]
     Indication: OBESITY
     Dosage: BID IM
     Route: 030
     Dates: start: 20100422, end: 20100426
  2. FLONASE [Concomitant]
  3. PROTONIX [Concomitant]

REACTIONS (3)
  - DYSPNOEA [None]
  - PLEURITIC PAIN [None]
  - PULMONARY EMBOLISM [None]
